FAERS Safety Report 8543961-1 (Version None)
Quarter: 2012Q3

REPORT INFORMATION
  Report Type: 
  Country: None (occurrence: None)
  Receive Date: 20120727
  Receipt Date: 20120725
  Transmission Date: 20120928
  Serious: Yes (Life-Threatening, Hospitalization)
  Sender: FDA-Public Use
  Company Number: JP-ABBOTT-12P-087-0944616-00

PATIENT
  Sex: Female
  Weight: 41 kg

DRUGS (4)
  1. LANSOPRAZOLE [Concomitant]
     Indication: ATRIAL FIBRILLATION
     Dates: start: 20120514, end: 20120606
  2. RIVAROXABAN [Concomitant]
     Indication: ATRIAL FIBRILLATION
     Dates: start: 20120514, end: 20120606
  3. CLARITHROMYCIN [Suspect]
     Indication: BRONCHIECTASIS
     Route: 048
     Dates: start: 20120528, end: 20120608
  4. APRINDINE HYDROCHLORIDE [Concomitant]
     Indication: ATRIAL FIBRILLATION
     Dates: start: 20120514, end: 20120606

REACTIONS (4)
  - DECREASED APPETITE [None]
  - LIVER DISORDER [None]
  - MALAISE [None]
  - RENAL DISORDER [None]
